FAERS Safety Report 7089909-0 (Version None)
Quarter: 2010Q4

REPORT INFORMATION
  Report Type: 
  Country: None (occurrence: None)
  Receive Date: 20101108
  Receipt Date: 20101029
  Transmission Date: 20110411
  Serious: Yes (Other)
  Sender: FDA-Public Use
  Company Number: US-AMGEN-QUU423879

PATIENT

DRUGS (5)
  1. NPLATE [Suspect]
     Indication: IDIOPATHIC THROMBOCYTOPENIC PURPURA
     Dosage: UNK UNK, QWK
     Dates: start: 20091101
  2. NPLATE [Suspect]
     Dates: start: 20091101
  3. CYCLOSPORINE [Concomitant]
     Dosage: UNK UNK, UNK
  4. LORAZEPAM [Concomitant]
     Dosage: UNK UNK, UNK
  5. CORTICOSTEROID NOS [Concomitant]

REACTIONS (12)
  - ASTHENIA [None]
  - BACK PAIN [None]
  - FATIGUE [None]
  - HEARING IMPAIRED [None]
  - IMPAIRED HEALING [None]
  - INSOMNIA [None]
  - MALAISE [None]
  - NASOPHARYNGITIS [None]
  - PAIN [None]
  - THERAPEUTIC RESPONSE DECREASED [None]
  - WEIGHT DECREASED [None]
  - WOUND INFECTION [None]
